FAERS Safety Report 9074894 (Version 4)
Quarter: 2013Q3

REPORT INFORMATION
  Report Type: Report from Study
  Country: JP (occurrence: JP)
  Receive Date: 20130129
  Receipt Date: 20130911
  Transmission Date: 20140515
  Serious: Yes (Death, Other)
  Sender: FDA-Public Use
  Company Number: JP-009507513-1301JPN012262

PATIENT
  Age: 57 Year
  Sex: Male

DRUGS (13)
  1. ZOLINZA CAPSULES 100MG [Suspect]
     Indication: MYCOSIS FUNGOIDES
     Dosage: 400 MG, QD
     Route: 048
     Dates: start: 20111206, end: 20111227
  2. ZOLINZA CAPSULES 100MG [Suspect]
     Dosage: 200 MG, QD
     Route: 048
     Dates: start: 20111228, end: 20120123
  3. ZOLINZA CAPSULES 100MG [Suspect]
     Dosage: 400 MG, QD
     Route: 048
     Dates: start: 20120124, end: 20120522
  4. ZOLINZA CAPSULES 100MG [Suspect]
     Dosage: 400 MG, QD
     Route: 048
     Dates: start: 20120622, end: 20120629
  5. ZOLINZA CAPSULES 100MG [Suspect]
     Dosage: 300 MG, QD
     Route: 048
     Dates: start: 20120703, end: 20120709
  6. ZOLINZA CAPSULES 100MG [Suspect]
     Dosage: 400 MG, QD
     Route: 048
     Dates: start: 20120710, end: 20120730
  7. ZOLINZA CAPSULES 100MG [Suspect]
     Dosage: 300 MG, QD
     Route: 048
     Dates: start: 20120731, end: 20121005
  8. BAKTAR [Suspect]
     Indication: PROPHYLAXIS
     Dosage: 2 TABLETS, QD
     Route: 048
     Dates: start: 20120604, end: 20121005
  9. PREDONINE [Suspect]
     Indication: MYCOSIS FUNGOIDES
     Dosage: 5 MG, QD
     Route: 048
     Dates: start: 20110802
  10. PREDONINE [Suspect]
     Dosage: 15 MG, QD
     Route: 048
     Dates: start: 20120228, end: 20121005
  11. MUCOSTA [Concomitant]
     Indication: MYCOSIS FUNGOIDES
     Dosage: 100 MG, QD
     Route: 048
     Dates: start: 20110802
  12. GASTER D [Concomitant]
     Indication: MYCOSIS FUNGOIDES
     Dosage: 10 MG, BID
     Route: 048
     Dates: start: 20111004
  13. ACTONEL [Concomitant]
     Indication: PROPHYLAXIS
     Dosage: 17.5 MG, QW
     Route: 048
     Dates: start: 20120512, end: 20121005

REACTIONS (7)
  - Disease progression [Fatal]
  - Neutrophil count decreased [Recovered/Resolved]
  - Platelet count decreased [Not Recovered/Not Resolved]
  - Malaise [Recovering/Resolving]
  - Dysgeusia [Not Recovered/Not Resolved]
  - Diabetes mellitus [Recovered/Resolved]
  - C-reactive protein increased [Not Recovered/Not Resolved]
